FAERS Safety Report 4809500-3 (Version None)
Quarter: 2005Q4

REPORT INFORMATION
  Report Type: 
  Country: None (occurrence: None)
  Receive Date: 20051021
  Receipt Date: 20030721
  Transmission Date: 20060501
  Serious: No
  Sender: FDA-Public Use
  Company Number: US_980605714

PATIENT
  Age: 25 Year
  Sex: Male
  Weight: 73 kg

DRUGS (5)
  1. ZYPREXA [Suspect]
     Indication: SCHIZOPHRENIA
     Dosage: 10 MG/2 DAY
     Dates: start: 19960801
  2. NEURONTIN [Concomitant]
  3. LOXITANE [Concomitant]
  4. DEPAKOTE [Concomitant]
  5. PROLIXIN [Concomitant]

REACTIONS (10)
  - AGGRESSION [None]
  - AGITATION [None]
  - DRUG INEFFECTIVE [None]
  - DYSPHEMIA [None]
  - HYPERSOMNIA [None]
  - INCOHERENT [None]
  - INSOMNIA [None]
  - NUCHAL RIGIDITY [None]
  - PLATELET DISORDER [None]
  - TREMOR [None]
